FAERS Safety Report 7399239-5 (Version None)
Quarter: 2011Q2

REPORT INFORMATION
  Report Type: 
  Country: None (occurrence: None)
  Receive Date: 20110407
  Receipt Date: 20110404
  Transmission Date: 20111010
  Serious: Yes (Death, Life-Threatening, Other)
  Sender: FDA-Public Use
  Company Number: JP-PFIZER INC-2008087616

PATIENT
  Age: 67 Year
  Sex: Male
  Weight: 45 kg

DRUGS (7)
  1. FERROUS CITRATE [Concomitant]
     Route: 048
     Dates: start: 20080804
  2. SUNITINIB MALATE [Suspect]
     Dosage: 37.5 MG, 1X/DAY
     Dates: start: 20090219, end: 20090318
  3. LAC B [Concomitant]
     Route: 048
  4. SUNITINIB MALATE [Suspect]
     Indication: GASTROINTESTINAL STROMAL TUMOUR
     Dosage: 50 MG, EVERY DAY
     Route: 048
     Dates: start: 20080804
  5. SUNITINIB MALATE [Suspect]
     Dosage: 37.5 MG, 1X/DAY
     Dates: start: 20090113, end: 20090207
  6. GASTER [Concomitant]
     Route: 048
  7. BERIZYM [Concomitant]
     Route: 048

REACTIONS (7)
  - THROMBOTIC MICROANGIOPATHY [None]
  - PLATELET COUNT DECREASED [None]
  - ASPARTATE AMINOTRANSFERASE INCREASED [None]
  - WHITE BLOOD CELL COUNT DECREASED [None]
  - BLOOD CREATINE PHOSPHOKINASE INCREASED [None]
  - BLOOD CREATININE INCREASED [None]
  - NEUTROPHIL COUNT DECREASED [None]
